FAERS Safety Report 20312473 (Version 1)
Quarter: 2022Q1

REPORT INFORMATION
  Report Type: Spontaneous
  Country: US (occurrence: None)
  Receive Date: 20220107
  Receipt Date: 20220107
  Transmission Date: 20220423
  Serious: Yes (unspecified)
  Sender: FDA-Public Use
  Company Number: None

PATIENT
  Sex: Female

DRUGS (3)
  1. PRIVIGEN [Suspect]
     Active Substance: HUMAN IMMUNOGLOBULIN G
     Dosage: OTHER FREQUENCY : ONCE;?
     Route: 041
     Dates: start: 20220106, end: 20220106
  2. IMMUNE GLOBULIN SUBCUTANEOUS (HUMAN) [Suspect]
     Active Substance: HUMAN IMMUNOGLOBULIN G
     Dosage: OTHER FREQUENCY : ONCE;?
     Route: 041
     Dates: start: 20220106, end: 20220106
  3. immune globulin (Human)gA 10 % IV Infusion (PRIVIGEN) [Concomitant]
     Dates: start: 20220106, end: 20220106

REACTIONS (3)
  - Pruritus [None]
  - Hypersensitivity [None]
  - Urticaria [None]

NARRATIVE: CASE EVENT DATE: 20220106
